FAERS Safety Report 5596567-0 (Version None)
Quarter: 2007Q4

REPORT INFORMATION
  Report Type: 
  Country: None (occurrence: None)
  Receive Date: 20071219
  Receipt Date: 20070920
  Transmission Date: 20080405
  Serious: No
  Sender: FDA-Public Use
  Company Number: HQWYE299625SEP07

PATIENT
  Age: 62 Year
  Sex: Male
  Weight: 75.36 kg

DRUGS (1)
  1. TORISEL [Suspect]
     Indication: RENAL CELL CARCINOMA STAGE UNSPECIFIED
     Dosage: INTRAVENOUS
     Route: 042

REACTIONS (1)
  - OEDEMA PERIPHERAL [None]
